FAERS Safety Report 4474347-7 (Version None)
Quarter: 2004Q4

REPORT INFORMATION
  Report Type: 
  Country: None (occurrence: None)
  Receive Date: 20041014
  Receipt Date: 20041004
  Transmission Date: 20050328
  Serious: Yes (Other)
  Sender: FDA-Public Use
  Company Number: PHRM2004FR03043

PATIENT
  Age: 32 Year
  Sex: Male

DRUGS (1)
  1. VOLTAREN [Suspect]
     Indication: OTITIS MEDIA CHRONIC
     Dosage: 25 MG, TID
     Route: 048
     Dates: start: 20040906

REACTIONS (2)
  - RETINAL HAEMORRHAGE [None]
  - VISION BLURRED [None]
